FAERS Safety Report 9138810 (Version 1)
Quarter: 2013Q1

REPORT INFORMATION
  Report Type: Spontaneous
  Country: US (occurrence: US)
  Receive Date: 20130305
  Receipt Date: 20130305
  Transmission Date: 20140127
  Serious: Yes (Hospitalization)
  Sender: FDA-Public Use
  Company Number: US-ENDO PHARMACEUTICALS INC.-PERC20120156

PATIENT
  Sex: Female
  Weight: 78 kg

DRUGS (8)
  1. PERCOCET [Suspect]
     Indication: PAIN
     Dosage: 10 MG
     Route: 048
     Dates: start: 2012
  2. AMBIEN [Suspect]
     Indication: INSOMNIA
     Route: 048
     Dates: start: 2011
  3. ZANTAC [Suspect]
     Indication: GASTROOESOPHAGEAL REFLUX DISEASE
     Dosage: 150 MG
     Route: 048
     Dates: start: 2012
  4. PHENERGAN [Suspect]
     Indication: NAUSEA
     Route: 048
     Dates: start: 2011
  5. XANAX [Suspect]
     Indication: ANXIETY
     Dosage: UNKNOWN
     Route: 048
     Dates: start: 2011, end: 201206
  6. FOLIC ACID [Suspect]
     Indication: PREGNANCY
     Route: 048
     Dates: start: 2012
  7. FOLIC ACID [Suspect]
     Indication: SICKLE CELL ANAEMIA
  8. PRENATAL VITAMINS [Concomitant]
     Indication: PRODUCT USED FOR UNKNOWN INDICATION
     Dosage: UNKNOWN
     Route: 048

REACTIONS (2)
  - Exposure during pregnancy [Not Recovered/Not Resolved]
  - Dehydration [Recovered/Resolved]
